FAERS Safety Report 17529659 (Version 2)
Quarter: 2020Q3

REPORT INFORMATION
  Report Type: Report from Study
  Country: None (occurrence: US)
  Receive Date: 20200312
  Receipt Date: 20200909
  Transmission Date: 20201102
  Serious: Yes (Other)
  Sender: FDA-Public Use
  Company Number: US-ABBVIE-20K-163-3315330-00

PATIENT
  Sex: Female

DRUGS (1)
  1. HUMIRA [Suspect]
     Active Substance: ADALIMUMAB
     Indication: CROHN^S DISEASE
     Dosage: CITRATE FREE
     Route: 058

REACTIONS (6)
  - Arthritis [Not Recovered/Not Resolved]
  - Pneumonia [Recovering/Resolving]
  - Pleurisy [Recovering/Resolving]
  - Nephropathy toxic [Not Recovered/Not Resolved]
  - Asthma [Not Recovered/Not Resolved]
  - Cardiomegaly [Not Recovered/Not Resolved]
